FAERS Safety Report 9546828 (Version 3)
Quarter: 2013Q4

REPORT INFORMATION
  Report Type: Spontaneous
  Country: BR (occurrence: BR)
  Receive Date: 20130924
  Receipt Date: 20131119
  Transmission Date: 20140711
  Serious: Yes (Death)
  Sender: FDA-Public Use
  Company Number: BR-BRISTOL-MYERS SQUIBB COMPANY-19422286

PATIENT
  Age: 64 Year
  Sex: Male

DRUGS (1)
  1. YERVOY [Suspect]
     Indication: MELANOMA RECURRENT
     Dosage: ONLY ONE INFUSION OF YERVOY.ROUTE ENDOVENOUS
     Dates: start: 20130725

REACTIONS (3)
  - Acute respiratory failure [Fatal]
  - Respiratory tract infection [Fatal]
  - Gastrointestinal haemorrhage [Fatal]
